FAERS Safety Report 15006383 (Version 1)
Quarter: 2018Q2

REPORT INFORMATION
  Report Type: Report from Study
  Country: US (occurrence: US)
  Receive Date: 20180613
  Receipt Date: 20180613
  Transmission Date: 20180711
  Serious: Yes (Other)
  Sender: FDA-Public Use
  Company Number: US-US WORLDMEDS, LLC-USW201706-000873

PATIENT
  Age: 66 Year
  Sex: Female
  Weight: 68.03 kg

DRUGS (5)
  1. MIRAPEX [Concomitant]
     Active Substance: PRAMIPEXOLE DIHYDROCHLORIDE
  2. SINEMET [Concomitant]
     Active Substance: CARBIDOPA\LEVODOPA
  3. ROBINUL [Concomitant]
     Active Substance: GLYCOPYRROLATE
     Indication: DROOLING
  4. HYOSCYAMINE. [Concomitant]
     Active Substance: HYOSCYAMINE
  5. APOKYN [Suspect]
     Active Substance: APOMORPHINE HYDROCHLORIDE
     Indication: PARKINSON^S DISEASE
     Dates: start: 20170309

REACTIONS (3)
  - Head injury [Recovering/Resolving]
  - Clavicle fracture [Recovering/Resolving]
  - Fall [Unknown]

NARRATIVE: CASE EVENT DATE: 20170611
